FAERS Safety Report 10158359 (Version 2)
Quarter: 2014Q2

REPORT INFORMATION
  Report Type: Report from Study
  Country: CA (occurrence: CA)
  Receive Date: 20140507
  Receipt Date: 20140519
  Transmission Date: 20141212
  Serious: Yes (Hospitalization, Other)
  Sender: FDA-Public Use
  Company Number: CA-PFIZER INC-2014123535

PATIENT
  Age: 59 Year
  Sex: Male

DRUGS (19)
  1. PANTOPRAZOLE [Suspect]
     Dosage: 40 MG, 1X/DAY
     Route: 042
  2. AMITRIPTYLINE [Suspect]
     Dosage: 10 MG, 1X/DAY
  3. ASA [Concomitant]
     Dosage: UNK
  4. ATORVASTATIN CALCIUM [Concomitant]
     Dosage: UNK
  5. BISOPROLOL [Concomitant]
     Dosage: UNK
  6. CENTRUM [Concomitant]
     Dosage: UNK
  7. CHAMPIX [Concomitant]
     Dosage: UNK
  8. CLOPIDOGREL [Concomitant]
     Dosage: UNK
  9. FLOMAX CR [Concomitant]
     Dosage: UNK
  10. GLYBURIDE [Concomitant]
     Dosage: UNK
  11. INSULIN [Concomitant]
     Dosage: UNK
  12. LIPITOR [Concomitant]
  13. METFORMIN [Concomitant]
     Dosage: UNK
  14. NITROGLYCERIN [Concomitant]
     Dosage: UNK
  15. NORVASC [Concomitant]
     Dosage: UNK
  16. RAMIPRIL [Concomitant]
     Dosage: UNK
  17. UREMOL [Concomitant]
     Dosage: UNK
  18. VESICARE [Concomitant]
     Dosage: UNK
  19. COUMADINE [Concomitant]
     Dosage: UNK

REACTIONS (10)
  - Blood creatine phosphokinase increased [Not Recovered/Not Resolved]
  - Fall [Not Recovered/Not Resolved]
  - Hypertension [Not Recovered/Not Resolved]
  - Hypocalcaemia [Not Recovered/Not Resolved]
  - Leukoencephalopathy [Not Recovered/Not Resolved]
  - Migraine [Not Recovered/Not Resolved]
  - Rhabdomyolysis [Not Recovered/Not Resolved]
  - Urinary retention [Not Recovered/Not Resolved]
  - Hypomagnesaemia [Not Recovered/Not Resolved]
  - Vertigo [Not Recovered/Not Resolved]
